FAERS Safety Report 6758117-2 (Version None)
Quarter: 2010Q2

REPORT INFORMATION
  Report Type: 
  Country: None (occurrence: None)
  Receive Date: 20100524
  Receipt Date: 20100225
  Transmission Date: 20101027
  Serious: No
  Sender: FDA-Public Use
  Company Number: 007815

PATIENT
  Sex: Female
  Weight: 95.2 kg

DRUGS (4)
  1. CIMZIA [Suspect]
     Indication: RHEUMATOID ARTHRITIS
     Dosage: (SUBCUTANEOUS)
     Route: 058
     Dates: start: 20100203
  2. METHOTREXATE [Concomitant]
  3. PLAQUENIL /00072603/ [Concomitant]
  4. PREDNISONE [Concomitant]

REACTIONS (3)
  - ABDOMINAL DISTENSION [None]
  - INFLUENZA LIKE ILLNESS [None]
  - RASH [None]
